FAERS Safety Report 15228001 (Version 1)
Quarter: 2018Q3

REPORT INFORMATION
  Report Type: Spontaneous
  Country: US (occurrence: US)
  Receive Date: 20180706
  Receipt Date: 20180706
  Transmission Date: 20181010
  Serious: Yes (Other)
  Sender: FDA-Public Use
  Company Number: None

PATIENT
  Age: 52 Year
  Sex: Female
  Weight: 54.43 kg

DRUGS (3)
  1. DURAGESIC [Suspect]
     Active Substance: FENTANYL
     Indication: SPINAL COLUMN STENOSIS
     Dosage: 50MCG 72HRS PATCH
     Dates: start: 20171205
  2. DURAGESIC [Suspect]
     Active Substance: FENTANYL
     Indication: PAIN
     Dosage: 50MCG 72HRS PATCH
     Dates: start: 20171205
  3. DURAGESIC [Suspect]
     Active Substance: FENTANYL
     Indication: INTERVERTEBRAL DISC DEGENERATION
     Dosage: 50MCG 72HRS PATCH
     Dates: start: 20171205

REACTIONS (21)
  - Chills [None]
  - Irritability [None]
  - Application site irritation [None]
  - Application site erythema [None]
  - Anxiety [None]
  - Urine output decreased [None]
  - Inadequate analgesia [None]
  - Blister [None]
  - Drug effect delayed [None]
  - Application site exfoliation [None]
  - Chromaturia [None]
  - Nasal mucosal disorder [None]
  - Serotonin syndrome [None]
  - Dizziness [None]
  - Muscle spasms [None]
  - Rhinalgia [None]
  - Hypersensitivity [None]
  - Toxicity to various agents [None]
  - Hyperhidrosis [None]
  - Pyrexia [None]
  - Peripheral swelling [None]

NARRATIVE: CASE EVENT DATE: 20171210
